FAERS Safety Report 5645315-4 (Version None)
Quarter: 2008Q1

REPORT INFORMATION
  Report Type: 
  Country: None (occurrence: None)
  Receive Date: 20080229
  Receipt Date: 20080222
  Transmission Date: 20080703
  Serious: Yes (Other)
  Sender: FDA-Public Use
  Company Number: A0712780A

PATIENT
  Sex: Female

DRUGS (3)
  1. IMITREX [Suspect]
  2. IMITREX [Suspect]
     Route: 048
  3. IMITREX [Suspect]
     Route: 045

REACTIONS (3)
  - BLINDNESS [None]
  - DRUG INEFFECTIVE [None]
  - IMPAIRED DRIVING ABILITY [None]
